FAERS Safety Report 8883372 (Version 1)
Quarter: 2012Q4

REPORT INFORMATION
  Report Type: 
  Country: US (occurrence: US)
  Receive Date: 20121102
  Receipt Date: 20121102
  Transmission Date: 20130627
  Serious: Yes (Other)
  Sender: FDA-Public Use
  Company Number: US-SANOFI-AVENTIS-2012SA078566

PATIENT
  Age: 95 Year
  Sex: Male

DRUGS (3)
  1. ALLEGRA [Suspect]
     Route: 048
     Dates: start: 20120920
  2. COUMADIN [Suspect]
     Route: 065
  3. NEBIVOLOL [Suspect]
     Route: 065
     Dates: start: 2012

REACTIONS (1)
  - Coagulopathy [Not Recovered/Not Resolved]
